FAERS Safety Report 14836978 (Version 2)
Quarter: 2018Q2

REPORT INFORMATION
  Report Type: Report from Study
  Country: AU (occurrence: AU)
  Receive Date: 20180502
  Receipt Date: 20180510
  Transmission Date: 20180711
  Serious: Yes (Other)
  Sender: FDA-Public Use
  Company Number: AU-TEVA-2018-AU-886016

PATIENT
  Age: 54 Year
  Sex: Female

DRUGS (1)
  1. COPAXONE [Suspect]
     Active Substance: GLATIRAMER ACETATE
     Indication: RELAPSING-REMITTING MULTIPLE SCLEROSIS
     Route: 058
     Dates: start: 20180423, end: 20180423

REACTIONS (7)
  - Presyncope [Recovered/Resolved]
  - Dizziness [Recovered/Resolved]
  - Heart rate decreased [Unknown]
  - Head discomfort [Unknown]
  - Pallor [Unknown]
  - Cold sweat [Recovered/Resolved]
  - Immediate post-injection reaction [Unknown]

NARRATIVE: CASE EVENT DATE: 20180423
